FAERS Safety Report 18492254 (Version 7)
Quarter: 2022Q2

REPORT INFORMATION
  Report Type: Spontaneous
  Country: US (occurrence: US)
  Receive Date: 20201111
  Receipt Date: 20220531
  Transmission Date: 20220720
  Serious: Yes (Other)
  Sender: FDA-Public Use
  Company Number: US-PFIZER INC-2020443406

PATIENT
  Age: 59 Year
  Sex: Male

DRUGS (1)
  1. XELJANZ XR [Suspect]
     Active Substance: TOFACITINIB CITRATE
     Dosage: 11 MG, DAILY
     Route: 048

REACTIONS (9)
  - Intentional dose omission [Unknown]
  - Ankle operation [Unknown]
  - Arthritis [Unknown]
  - Feeling abnormal [Unknown]
  - Pain [Unknown]
  - Disturbance in attention [Unknown]
  - Movement disorder [Unknown]
  - Influenza [Unknown]
  - COVID-19 [Unknown]

NARRATIVE: CASE EVENT DATE: 20200101
